FAERS Safety Report 11439284 (Version 2)
Quarter: 2015Q3

REPORT INFORMATION
  Report Type: Spontaneous
  Country: US (occurrence: US)
  Receive Date: 20150901
  Receipt Date: 20150921
  Transmission Date: 20151125
  Serious: Yes (Other)
  Sender: FDA-Public Use
  Company Number: US-AUROBINDO-AUR-APL-2015-07792

PATIENT
  Age: 85 Year
  Sex: Male

DRUGS (4)
  1. DIVALPROEX [Suspect]
     Active Substance: DIVALPROEX SODIUM
     Indication: MANIA
     Dosage: 750 MG, DAILY
     Route: 065
  2. DIVALPROEX [Interacting]
     Active Substance: DIVALPROEX SODIUM
     Dosage: 500 MG, DAILY
     Route: 065
  3. TOPIRAMATE. [Interacting]
     Active Substance: TOPIRAMATE
     Indication: MANIA
     Dosage: 100 MG, DAILY
     Route: 065
  4. DIVALPROEX [Interacting]
     Active Substance: DIVALPROEX SODIUM
     Dosage: 250 MG, DAILY
     Route: 065

REACTIONS (5)
  - Gait disturbance [Recovered/Resolved]
  - Labelled drug-drug interaction medication error [Recovered/Resolved]
  - Condition aggravated [Recovered/Resolved]
  - Balance disorder [Recovered/Resolved]
  - Hyperammonaemia [Recovered/Resolved]
